FAERS Safety Report 10413996 (Version 1)
Quarter: 2014Q3

REPORT INFORMATION
  Report Type: Spontaneous
  Country: US (occurrence: US)
  Receive Date: 20140827
  Receipt Date: 20140827
  Transmission Date: 20150326
  Serious: No
  Sender: FDA-Public Use
  Company Number: US-GALDERMA-US14001708

PATIENT
  Age: 60 Year
  Sex: Female

DRUGS (4)
  1. CERAVE WASH [Concomitant]
     Indication: THERAPEUTIC SKIN CARE TOPICAL
     Route: 061
  2. CERAVE AM FACIAL MOISTURIZING [Concomitant]
     Active Substance: HOMOSALATE\OCTINOXATE\OCTOCRYLENE\ZINC OXIDE
     Indication: DRY SKIN PROPHYLAXIS
     Route: 061
  3. METROGEL [Suspect]
     Active Substance: METRONIDAZOLE
     Indication: ROSACEA
     Dosage: 1%
     Route: 061
     Dates: start: 201401, end: 201405
  4. MULTIVITAMINS [Concomitant]
     Active Substance: VITAMINS
     Indication: VITAMIN SUPPLEMENTATION
     Route: 048

REACTIONS (2)
  - Lacrimation increased [Recovered/Resolved]
  - Oral mucosal eruption [Recovered/Resolved]

NARRATIVE: CASE EVENT DATE: 201401
